FAERS Safety Report 22250829 (Version 1)
Quarter: 2023Q2

REPORT INFORMATION
  Report Type: Spontaneous
  Country: US (occurrence: None)
  Receive Date: 20230425
  Receipt Date: 20230425
  Transmission Date: 20230722
  Serious: Yes (Other)
  Sender: FDA-Public Use
  Company Number: US-ROCHE-3241261

PATIENT
  Age: 11 Year
  Sex: Male

DRUGS (2)
  1. HEMLIBRA [Suspect]
     Active Substance: EMICIZUMAB-KXWH
     Indication: Factor VIII deficiency
     Dosage: 3 MONTHS AGO
     Route: 065
  2. ELOCTATE [Concomitant]
     Active Substance: EFMOROCTOCOG ALFA

REACTIONS (4)
  - Renal haemorrhage [Unknown]
  - Back pain [Unknown]
  - Blood urine present [Unknown]
  - Abdominal pain [Unknown]
